FAERS Safety Report 21199235 (Version 7)
Quarter: 2023Q4

REPORT INFORMATION
  Report Type: Spontaneous
  Country: GB (occurrence: GB)
  Receive Date: 20220811
  Receipt Date: 20231117
  Transmission Date: 20240109
  Serious: Yes (Hospitalization, Other)
  Sender: FDA-Public Use
  Company Number: GB-TAKEDA-2021TUS082084

PATIENT
  Age: 74 Year
  Sex: Male

DRUGS (35)
  1. IMODIUM [Suspect]
     Active Substance: LOPERAMIDE HYDROCHLORIDE
     Indication: Product used for unknown indication
     Route: 065
  2. ACYCLOVIR [Suspect]
     Active Substance: ACYCLOVIR
     Indication: Product used for unknown indication
     Dosage: 800 MG, UNK
     Route: 065
  3. ACYCLOVIR [Suspect]
     Active Substance: ACYCLOVIR
     Dosage: 20 MILLIGRAM, BID
     Route: 065
  4. CALCIUM CARBONATE\CHOLECALCIFEROL [Suspect]
     Active Substance: CALCIUM CARBONATE\CHOLECALCIFEROL
     Indication: Product used for unknown indication
     Dosage: UNK UNK, BID
     Route: 065
  5. COTRIMOXAZOLE [Suspect]
     Active Substance: SULFAMETHOXAZOLE\TRIMETHOPRIM
     Indication: Product used for unknown indication
     Route: 065
  6. COTRIMOXAZOLE [Suspect]
     Active Substance: SULFAMETHOXAZOLE\TRIMETHOPRIM
     Route: 065
  7. DEXAMETHASONE [Suspect]
     Active Substance: DEXAMETHASONE
     Indication: Product used for unknown indication
     Dosage: 10 MG, UNK
     Route: 065
  8. METOCLOPRAMIDE [Suspect]
     Active Substance: METOCLOPRAMIDE
     Indication: Product used for unknown indication
     Dosage: 10 MG, 3X/DAY PRN
     Route: 065
  9. NINLARO [Suspect]
     Active Substance: IXAZOMIB CITRATE
     Indication: Product used for unknown indication
     Dosage: 2.3 MG, UNK
     Route: 065
  10. OMEPRAZOLE [Suspect]
     Active Substance: OMEPRAZOLE
     Indication: Product used for unknown indication
     Dosage: 20 MG, QD
     Route: 065
  11. REVLIMID [Suspect]
     Active Substance: LENALIDOMIDE
     Indication: Product used for unknown indication
     Route: 065
  12. REVLIMID [Suspect]
     Active Substance: LENALIDOMIDE
     Route: 065
  13. REVLIMID [Suspect]
     Active Substance: LENALIDOMIDE
     Route: 065
  14. XARELTO [Suspect]
     Active Substance: RIVAROXABAN
     Indication: Product used for unknown indication
     Dosage: 10 MILLIGRAM ONCE A DAY
     Route: 065
  15. XARELTO [Suspect]
     Active Substance: RIVAROXABAN
     Dosage: 20 MILLIGRAM, AT AN UNSPECIFIED FREQUENCY
     Route: 065
  16. XARELTO [Suspect]
     Active Substance: RIVAROXABAN
     Route: 065
  17. EPOETIN BETA [Suspect]
     Active Substance: ERYTHROPOIETIN
     Indication: Product used for unknown indication
     Dosage: 2000 INTERNATIONAL UNIT, 2/WEEK, 4000 IU 1 WEEK
     Route: 058
  18. INTERFERON ALFA-2B [Suspect]
     Active Substance: INTERFERON ALFA-2B
     Indication: Product used for unknown indication
     Dosage: 20 MILLIGRAM, BID
     Route: 065
  19. INTERFERON ALFA-2B [Suspect]
     Active Substance: INTERFERON ALFA-2B
     Dosage: 400 MG, BID (800 MG, ONCE DAILY)
     Route: 065
  20. INTERFERON ALFA-2B [Suspect]
     Active Substance: INTERFERON ALFA-2B
     Route: 065
  21. LIDOCAINE [Suspect]
     Active Substance: LIDOCAINE
     Indication: Product used for unknown indication
     Dosage: 400 MG, BID (800 MG, ONCE DAILY)
     Route: 065
  22. LIDOCAINE [Suspect]
     Active Substance: LIDOCAINE
     Dosage: 20 MILLIGRAM, BID
     Route: 065
  23. FENPIVERINIUM BROMIDE [Suspect]
     Active Substance: FENPIVERINIUM BROMIDE
     Indication: Product used for unknown indication
     Dosage: UNK, QD (UNK, BID)
     Route: 065
  24. FENPIVERINIUM BROMIDE [Suspect]
     Active Substance: FENPIVERINIUM BROMIDE
     Dosage: UNK, QD
     Route: 065
  25. FENPIVERINIUM BROMIDE [Suspect]
     Active Substance: FENPIVERINIUM BROMIDE
     Route: 065
  26. METAMIZOLE [Suspect]
     Active Substance: METAMIZOLE
     Indication: Product used for unknown indication
     Route: 065
  27. METAMIZOLE [Suspect]
     Active Substance: METAMIZOLE
     Route: 065
  28. METAMIZOLE [Suspect]
     Active Substance: METAMIZOLE
     Route: 065
  29. PITOFENONE HYDROCHLORIDE [Suspect]
     Active Substance: PITOFENONE HYDROCHLORIDE
     Indication: Product used for unknown indication
     Dosage: UNK, QD (UNK, BID)
     Route: 065
  30. PITOFENONE HYDROCHLORIDE [Suspect]
     Active Substance: PITOFENONE HYDROCHLORIDE
     Dosage: UNK, QD (UNK, BID)
     Route: 065
  31. PITOFENONE HYDROCHLORIDE [Suspect]
     Active Substance: PITOFENONE HYDROCHLORIDE
     Route: 065
  32. SIMETHICONE (DIMETHICONE) [Suspect]
     Active Substance: DIMETHICONE
     Indication: Product used for unknown indication
     Dosage: 2 MG (FREQUENCY NOT REPORTED)
     Route: 065
  33. SIMETHICONE (DIMETHICONE) [Suspect]
     Active Substance: DIMETHICONE
     Route: 065
  34. PANCREATIN [Suspect]
     Active Substance: PANCRELIPASE
     Indication: Product used for unknown indication
     Route: 065
  35. PANCREATIN [Suspect]
     Active Substance: PANCRELIPASE
     Route: 065

REACTIONS (10)
  - Cerebrovascular accident [Unknown]
  - Inappropriate schedule of product administration [Unknown]
  - Neutrophil count abnormal [Unknown]
  - Malaise [Unknown]
  - Musculoskeletal chest pain [Unknown]
  - Productive cough [Unknown]
  - Feeling cold [Unknown]
  - Chromaturia [Unknown]
  - Decreased appetite [Unknown]
  - Pyrexia [Unknown]
